FAERS Safety Report 23368959 (Version 1)
Quarter: 2024Q1

REPORT INFORMATION
  Report Type: Spontaneous
  Country: NL (occurrence: NL)
  Receive Date: 20240105
  Receipt Date: 20240105
  Transmission Date: 20240410
  Serious: Yes (Other)
  Sender: FDA-Public Use
  Company Number: None

PATIENT
  Age: 68 Year
  Sex: Male
  Weight: 95 kg

DRUGS (9)
  1. ROSUVASTATIN CALCIUM [Suspect]
     Active Substance: ROSUVASTATIN CALCIUM
     Indication: Hypercholesterolaemia
     Dosage: 10MG, 1 DD 1 TABLET
     Dates: start: 20220531, end: 20230801
  2. METRONIDAZOLE [Concomitant]
     Active Substance: METRONIDAZOLE
     Dosage: 7.5 MG/G, APPLY TO THE SKIN AS REQUIRED
  3. CHOLECALCIFEROL [Concomitant]
     Active Substance: CHOLECALCIFEROL
     Dosage: 5600 IU, TAKE 1 CAPSULE BY MOUTH 1 X PER WEEK ON MONDAY
  4. OMEPRAZOLE [Concomitant]
     Active Substance: OMEPRAZOLE
     Dosage: 40MG, TAKE 1 CAPSULE BY MOUTH DAILY
  5. CITALOPRAM [Concomitant]
     Active Substance: CITALOPRAM HYDROBROMIDE
     Dosage: 40 MG, TAKE 40 MG BY MOUTH EVERY MORNING DURING BREAKFAST.
  6. INSULIN DEGLUDEC [Concomitant]
     Active Substance: INSULIN DEGLUDEC
     Dosage: 200 U/ML PEN 3 ML, 72 UNITS IN THE EVENING 20.00
  7. INSULIN ASPART [Concomitant]
     Active Substance: INSULIN ASPART
     Dosage: 100 U/ML PEN 3 ML, 16 UNITS 3 TIMES PER DAY DURING MEALS
  8. ASPIRIN [Concomitant]
     Active Substance: ASPIRIN
     Dosage: 80 MG, TAKE 80 MG BY MOUTH EVERY MORNING DURING BREAKFAST
  9. NITROGLYCERIN [Concomitant]
     Active Substance: NITROGLYCERIN
     Dosage: 0.4 MG/DO, 1 SPRAY AS REQUIRED FOR CHEST PAIN

REACTIONS (1)
  - Syncope [Recovered/Resolved]
